FAERS Safety Report 15293479 (Version 3)
Quarter: 2019Q3

REPORT INFORMATION
  Report Type: Spontaneous
  Country: DE (occurrence: DE)
  Receive Date: 20180820
  Receipt Date: 20190807
  Transmission Date: 20191004
  Serious: Yes (Other)
  Sender: FDA-Public Use
  Company Number: DE-BRISTOL-MYERS SQUIBB COMPANY-BMS-2018-062951

PATIENT
  Sex: Female

DRUGS (2)
  1. TAMBOCOR [Concomitant]
     Active Substance: FLECAINIDE ACETATE
     Indication: ATRIAL FIBRILLATION
     Dosage: UNK
     Route: 065
  2. ELIQUIS [Suspect]
     Active Substance: APIXABAN
     Indication: CEREBROVASCULAR ACCIDENT PROPHYLAXIS
     Dosage: 5 MG, BID (MORNING AND EVENING)
     Route: 048

REACTIONS (5)
  - Contusion [Recovered/Resolved]
  - Fall [Recovered/Resolved]
  - Swelling [Recovered/Resolved]
  - Road traffic accident [Unknown]
  - Recurrent cancer [Unknown]
